FAERS Safety Report 7533107-0 (Version None)
Quarter: 2011Q2

REPORT INFORMATION
  Report Type: 
  Country: None (occurrence: None)
  Receive Date: 20110608
  Receipt Date: 20110524
  Transmission Date: 20111010
  Serious: No
  Sender: FDA-Public Use
  Company Number: US-B.I. PHARMACEUTICALS,INC./RIDGEFIELD-2011-BP-06700BP

PATIENT
  Sex: Male
  Weight: 99.79 kg

DRUGS (8)
  1. PRADAXA [Suspect]
     Indication: ATRIAL FIBRILLATION
     Dosage: 300 MG
     Route: 048
     Dates: start: 20110118
  2. PLAVIX [Concomitant]
  3. BETA BLOCKER [Concomitant]
  4. NEXIUM [Concomitant]
     Indication: GASTROOESOPHAGEAL REFLUX DISEASE
     Dosage: 40 MG
     Route: 048
  5. TYLENOL-500 [Concomitant]
  6. DIOVAN [Concomitant]
     Dosage: 80 MG
  7. CRESTOR [Concomitant]
     Dosage: 40 MG
  8. METOPROLOL TARTRATE [Concomitant]
     Dosage: 25 MG
     Dates: start: 20101101

REACTIONS (9)
  - FATIGUE [None]
  - ABDOMINAL PAIN [None]
  - ABDOMINAL DISCOMFORT [None]
  - DECREASED APPETITE [None]
  - DYSPEPSIA [None]
  - DIZZINESS [None]
  - SOMNOLENCE [None]
  - MALAISE [None]
  - RETCHING [None]
